FAERS Safety Report 11742769 (Version 1)
Quarter: 2015Q4

REPORT INFORMATION
  Report Type: Spontaneous
  Country: PT (occurrence: PT)
  Receive Date: 20151116
  Receipt Date: 20151116
  Transmission Date: 20160304
  Serious: Yes (Other)
  Sender: FDA-Public Use
  Company Number: PT-DEP_03129_2015

PATIENT
  Age: 53 Year
  Sex: Female
  Weight: 55 kg

DRUGS (2)
  1. PALEXIA [Suspect]
     Active Substance: TAPENTADOL HYDROCHLORIDE
     Indication: CANCER PAIN
     Route: 048
     Dates: start: 20150404, end: 20150404
  2. PANTOPRAZOL RATIOPHARM [Concomitant]
     Dosage: 40MG

REACTIONS (2)
  - Burning sensation [Unknown]
  - Erythema [Unknown]

NARRATIVE: CASE EVENT DATE: 20150404
